FAERS Safety Report 23160235 (Version 1)
Quarter: 2023Q4

REPORT INFORMATION
  Report Type: Spontaneous
  Country: JP (occurrence: JP)
  Receive Date: 20231108
  Receipt Date: 20231108
  Transmission Date: 20240109
  Serious: Yes (Other)
  Sender: FDA-Public Use
  Company Number: JP-GLAXOSMITHKLINE-JP2023015218

PATIENT
  Age: 84 Year
  Sex: Male

DRUGS (13)
  1. DUTASTERIDE [Suspect]
     Active Substance: DUTASTERIDE
     Indication: Product used for unknown indication
     Dosage: 0.5 MG
     Route: 065
  2. deebiro [Concomitant]
     Dosage: 0.5 MG, TWO DF
     Route: 065
  3. clopidogrel sulfate (clopidogrel bisulfate) [Concomitant]
     Route: 065
  4. edoxaban tosilate?(Lixiana Od Tablets) [Concomitant]
     Route: 065
  5. lansoprazole (Lansoprazole-Od Tablets) [Concomitant]
     Route: 065
  6. CARVEDILOL [Concomitant]
     Active Substance: CARVEDILOL
     Route: 065
  7. zonisamide (Excegran Powder) [Concomitant]
     Route: 065
  8. Tamsulosin Hydrochloride OD tablet (Tamsulosin Hydrochloride) [Concomitant]
     Route: 065
  9. prednisolone (Prednisolone Tablets) [Concomitant]
     Route: 065
  10. clonazepam (Rivotril) [Concomitant]
  11. RAMELTEON [Concomitant]
     Active Substance: RAMELTEON
     Route: 065
  12. rosuvastatin?calcium (Rosuvastatin Calcium Tablets) [Concomitant]
     Route: 065
  13. sitagliptin phosphate (Januvia Tablet (Sitagliptin Phosphate Hydrate)) [Concomitant]
     Route: 065

REACTIONS (2)
  - Dysphagia [Not Recovered/Not Resolved]
  - Parkinson^s disease [Unknown]
